FAERS Safety Report 9329200 (Version 1)
Quarter: 2013Q2

REPORT INFORMATION
  Report Type: Spontaneous
  Country: US (occurrence: US)
  Receive Date: 20130604
  Receipt Date: 20130604
  Transmission Date: 20140414
  Serious: Yes (Other)
  Sender: FDA-Public Use
  Company Number: US-ASTRAZENECA-2013SE37053

PATIENT
  Age: 71 Year
  Sex: Female

DRUGS (21)
  1. SYMBICORT [Suspect]
     Indication: CHRONIC OBSTRUCTIVE PULMONARY DISEASE
     Dosage: 160 MCG 2 PUFFS BID
     Route: 055
  2. LISINOPRIL [Suspect]
     Indication: HYPERTENSION
     Route: 048
  3. SPIRIVA [Concomitant]
     Indication: CHRONIC OBSTRUCTIVE PULMONARY DISEASE
     Dosage: DAILY
     Route: 050
  4. BACLOFEN [Concomitant]
     Indication: MUSCLE SPASMS
     Dosage: 5 MG IN AM AND 20 MG IN PM
  5. COLACE [Concomitant]
     Indication: CONSTIPATION
  6. LEXAPRO [Concomitant]
     Indication: ANXIETY
  7. LEXAPRO [Concomitant]
     Indication: DEPRESSION
  8. LIPITOR [Concomitant]
     Indication: BLOOD CHOLESTEROL ABNORMAL
  9. LOPRESSOR [Concomitant]
     Indication: HYPERTENSION
  10. NORVASC [Concomitant]
     Indication: HYPERTENSION
  11. PEPCID [Concomitant]
     Indication: HYPERCHLORHYDRIA
  12. OXYBUTIN ER [Concomitant]
     Indication: POLLAKIURIA
  13. TYLENOL PM [Concomitant]
     Indication: SLEEP DISORDER
     Dosage: 500/25 AT NIGHT
  14. MUCINEX [Concomitant]
     Indication: CHEST DISCOMFORT
     Dosage: 1200 MG PRN USUALLY TAKES 3 OR 4 TIMES A WEEK
  15. MUCINEX [Concomitant]
     Indication: OROPHARYNGEAL DISCOMFORT
     Dosage: 1200 MG PRN USUALLY TAKES 3 OR 4 TIMES A WEEK
  16. NEURONTIN [Concomitant]
     Indication: NEURALGIA
  17. MULTIVITAMIN [Concomitant]
  18. VITAMIN D3 [Concomitant]
     Dosage: 2000 IU
  19. VITAMIN C [Concomitant]
  20. FISH OIL [Concomitant]
  21. MAGNESIUM [Concomitant]

REACTIONS (10)
  - Monoplegia [Unknown]
  - Cerebrovascular accident [Recovered/Resolved with Sequelae]
  - Weight increased [Unknown]
  - Speech disorder [Unknown]
  - Blood cholesterol increased [Unknown]
  - Loss of control of legs [Unknown]
  - Limb deformity [Unknown]
  - Hypertension [Unknown]
  - Oropharyngeal discomfort [Unknown]
  - Dysphonia [Unknown]
